FAERS Safety Report 8004748-1 (Version None)
Quarter: 2011Q4

REPORT INFORMATION
  Report Type: 
  Country: None (occurrence: None)
  Receive Date: 20111223
  Receipt Date: 20111215
  Transmission Date: 20120403
  Serious: No
  Sender: FDA-Public Use
  Company Number: US-JNJFOC-20111209079

PATIENT
  Age: 6 Decade
  Sex: Female

DRUGS (2)
  1. INVEGA SUSTENNA [Suspect]
     Indication: SCHIZOPHRENIA
     Route: 030
     Dates: start: 20111001
  2. SEROQUEL [Concomitant]
     Indication: SLEEP DISORDER
     Route: 065
     Dates: start: 20111214

REACTIONS (2)
  - TRISMUS [None]
  - GAIT DISTURBANCE [None]
